FAERS Safety Report 8111107-X (Version None)
Quarter: 2012Q1

REPORT INFORMATION
  Report Type: 
  Country: None (occurrence: None)
  Receive Date: 20120203
  Receipt Date: 20110425
  Transmission Date: 20120608
  Serious: No
  Sender: FDA-Public Use
  Company Number: US-GLAXOSMITHKLINE-A0924401A

PATIENT
  Age: 52 Year
  Sex: Female

DRUGS (4)
  1. ANTI-INFLAMMATORY [Suspect]
  2. VENLAFAXINE [Concomitant]
  3. CLONAZEPAM [Concomitant]
  4. LAMOTRIGINE [Suspect]
     Indication: PRODUCT USED FOR UNKNOWN INDICATION
     Dosage: 400MG PER DAY
     Route: 048
     Dates: start: 20080101

REACTIONS (5)
  - SCAR [None]
  - CONTUSION [None]
  - RASH PAPULAR [None]
  - SKIN DISCOLOURATION [None]
  - RASH PRURITIC [None]
